FAERS Safety Report 12726953 (Version 1)
Quarter: 2016Q3

REPORT INFORMATION
  Report Type: Spontaneous
  Country: FR (occurrence: FR)
  Receive Date: 20160909
  Receipt Date: 20160909
  Transmission Date: 20161109
  Serious: Yes (Hospitalization, Other)
  Sender: FDA-Public Use
  Company Number: FR-BEH-2016073274

PATIENT
  Age: 30 Year
  Sex: Female

DRUGS (7)
  1. OCTAGAM IMMUNE GLOBULIN (HUMAN) [Suspect]
     Active Substance: HUMAN IMMUNOGLOBULIN G
     Dosage: 30 G, UNK
     Route: 042
     Dates: start: 20160309
  2. LEVOTHYROX [Concomitant]
     Active Substance: LEVOTHYROXINE
  3. ZITHROMAX [Concomitant]
     Active Substance: AZITHROMYCIN DIHYDRATE
     Route: 048
  4. VIVAGLOBIN [Suspect]
     Active Substance: HUMAN IMMUNOGLOBULIN G
     Dosage: UNK
     Route: 058
     Dates: start: 20100312
  5. HYDROCORTISONE. [Concomitant]
     Active Substance: HYDROCORTISONE
     Route: 048
  6. VIVAGLOBIN [Suspect]
     Active Substance: HUMAN IMMUNOGLOBULIN G
     Indication: PRODUCT USED FOR UNKNOWN INDICATION
     Dosage: 4500 MG, QW
     Route: 058
     Dates: start: 2010
  7. PRIVIGEN [Suspect]
     Active Substance: HUMAN IMMUNOGLOBULIN G
     Indication: PRODUCT USED FOR UNKNOWN INDICATION
     Dosage: 20 G, UNK
     Route: 042
     Dates: start: 20160615

REACTIONS (11)
  - Photophobia [Recovered/Resolved]
  - Headache [Recovering/Resolving]
  - Meningitis aseptic [Recovering/Resolving]
  - Headache [Recovered/Resolved]
  - Hemiparesis [Recovered/Resolved]
  - Pyrexia [Recovered/Resolved]
  - Phonophobia [Recovered/Resolved]
  - Meningitis aseptic [Recovered/Resolved]
  - Chills [None]
  - Monoparesis [Recovered/Resolved]
  - Musculoskeletal stiffness [None]

NARRATIVE: CASE EVENT DATE: 20100312
